FAERS Safety Report 19242073 (Version 2)
Quarter: 2021Q2

REPORT INFORMATION
  Report Type: Spontaneous
  Country: US (occurrence: US)
  Receive Date: 20210510
  Receipt Date: 20210529
  Transmission Date: 20210717
  Serious: No
  Sender: FDA-Public Use
  Company Number: US-INSUD PHARMA-2104US00395

PATIENT

DRUGS (2)
  1. ALTAVERA [Suspect]
     Active Substance: ETHINYL ESTRADIOL\LEVONORGESTREL
     Indication: CONTRACEPTION
     Dosage: 1 DAILY
     Route: 048
     Dates: start: 20210226
  2. ALTAVERA [Suspect]
     Active Substance: ETHINYL ESTRADIOL\LEVONORGESTREL
     Dosage: REPLACEMENT PACK
     Route: 048
     Dates: start: 20210406

REACTIONS (3)
  - Intermenstrual bleeding [Not Recovered/Not Resolved]
  - Suspected product quality issue [Not Recovered/Not Resolved]
  - Product label issue [Not Recovered/Not Resolved]

NARRATIVE: CASE EVENT DATE: 20210315
